FAERS Safety Report 6838973-X (Version None)
Quarter: 2010Q3

REPORT INFORMATION
  Report Type: 
  Country: None (occurrence: None)
  Receive Date: 20100713
  Receipt Date: 20070821
  Transmission Date: 20110219
  Serious: No
  Sender: FDA-Public Use
  Company Number: US-PFIZER INC-2007040826

PATIENT
  Sex: Female
  Weight: 79.545 kg

DRUGS (7)
  1. CHANTIX [Suspect]
     Indication: SMOKING CESSATION THERAPY
     Dates: start: 20070402, end: 20070423
  2. SYNTHROID [Concomitant]
  3. PAXIL [Concomitant]
  4. CLARITIN [Concomitant]
  5. CRESTOR [Concomitant]
  6. XANAX [Concomitant]
  7. SOMA [Concomitant]

REACTIONS (5)
  - ABDOMINAL DISCOMFORT [None]
  - DIARRHOEA [None]
  - HEADACHE [None]
  - MALAISE [None]
  - RASH [None]
